FAERS Safety Report 14302374 (Version 1)
Quarter: 2017Q4

REPORT INFORMATION
  Report Type: Spontaneous
  Country: US (occurrence: US)
  Receive Date: 20171219
  Receipt Date: 20171219
  Transmission Date: 20180321
  Serious: No
  Sender: FDA-Public Use
  Company Number: US-SUPERNUS PHARMACEUTICALS, INC.-2017SUP00091

PATIENT
  Age: 56 Year
  Sex: Female
  Weight: 102.95 kg

DRUGS (15)
  1. HUMULIN R INSULIN PUMP [Concomitant]
  2. ESTRADIOL. [Concomitant]
     Active Substance: ESTRADIOL
     Dosage: 1 MG, 1X/DAY
  3. FENOFIBRATE. [Concomitant]
     Active Substance: FENOFIBRATE
     Dosage: 135 MG, 1X/DAY
  4. TROKENDI XR [Suspect]
     Active Substance: TOPIRAMATE
     Indication: NEURALGIA
     Dosage: 25 MG, 1X/DAY
     Dates: start: 20170227, end: 201703
  5. CYMBALTA [Suspect]
     Active Substance: DULOXETINE HYDROCHLORIDE
     Dosage: 60 MG, 1X/DAY
     Route: 048
     Dates: start: 2016, end: 2017
  6. VITAMIN D3 [Concomitant]
     Active Substance: CHOLECALCIFEROL
     Dosage: 5000 U, 1X/DAY
  7. HYDROCHLOROTHIAZIDE. [Concomitant]
     Active Substance: HYDROCHLOROTHIAZIDE
     Dosage: 25 MG, 1X/DAY
  8. UNSPECIFIED ENTERIC COATED MEDICATION [Concomitant]
     Dosage: UNK
  9. TROKENDI XR [Suspect]
     Active Substance: TOPIRAMATE
     Indication: NEURALGIA
     Dosage: 50 MG, 1X/DAY
     Route: 048
     Dates: start: 201703, end: 201704
  10. METFORMIN [Concomitant]
     Active Substance: METFORMIN HYDROCHLORIDE
     Dosage: 1000 MG, 2X/DAY
  11. SIMVASTATIN. [Concomitant]
     Active Substance: SIMVASTATIN
     Dosage: 40 MG, 1X/DAY
  12. QUINAPRIL. [Concomitant]
     Active Substance: QUINAPRIL
     Dosage: 40 MG, 1X/DAY
  13. NEXIUM [Concomitant]
     Active Substance: ESOMEPRAZOLE MAGNESIUM
     Dosage: 40 MG, 1X/DAY
  14. RANITIDINE. [Concomitant]
     Active Substance: RANITIDINE
     Dosage: 300 MG, 1X/DAY
  15. METHIMAZOLE. [Concomitant]
     Active Substance: METHIMAZOLE
     Dosage: 5 MG, 1X/DAY

REACTIONS (9)
  - Dizziness [Recovered/Resolved]
  - Cough [Not Recovered/Not Resolved]
  - Depression [Recovered/Resolved]
  - Abdominal pain [Recovering/Resolving]
  - Mental impairment [Recovered/Resolved]
  - Head discomfort [Recovered/Resolved]
  - Off label use [Recovered/Resolved]
  - Respiration abnormal [Not Recovered/Not Resolved]
  - Insomnia [Recovering/Resolving]

NARRATIVE: CASE EVENT DATE: 2017
